FAERS Safety Report 12455869 (Version 1)
Quarter: 2016Q2

REPORT INFORMATION
  Report Type: Report from Study
  Country: BR (occurrence: BR)
  Receive Date: 20160610
  Receipt Date: 20160610
  Transmission Date: 20160815
  Serious: Yes (Hospitalization, Other)
  Sender: FDA-Public Use
  Company Number: PHHY2016BR079417

PATIENT
  Sex: Male

DRUGS (2)
  1. HYDREA [Concomitant]
     Active Substance: HYDROXYUREA
     Indication: ANAEMIA
     Route: 065
  2. EXJADE [Suspect]
     Active Substance: DEFERASIROX
     Indication: ANAEMIA
     Route: 065

REACTIONS (6)
  - Coagulation time shortened [Unknown]
  - Pain [Recovering/Resolving]
  - Pneumonia [Recovering/Resolving]
  - Pulmonary embolism [Unknown]
  - Malaise [Unknown]
  - Serum ferritin increased [Unknown]
